FAERS Safety Report 6848616-7 (Version None)
Quarter: 2010Q4

REPORT INFORMATION
  Report Type: 
  Country: None (occurrence: None)
  Receive Date: 20100716
  Receipt Date: 20100708
  Transmission Date: 20110411
  Serious: Yes (Hospitalization, Disabling)
  Sender: FDA-Public Use
  Company Number: GXKR2010GB07611

PATIENT
  Age: 71 Year
  Sex: Female

DRUGS (15)
  1. ALBUTEROL SULFATE AUTOHALER [Suspect]
     Indication: CHRONIC OBSTRUCTIVE PULMONARY DISEASE
  2. IPRATROPIUM BROMIDE AND ALBUTEROL SULFATE [Suspect]
     Indication: CHRONIC OBSTRUCTIVE PULMONARY DISEASE
     Dosage: 2.5 ML, QID
     Dates: end: 20100623
  3. ALENDRONATE SODIUM [Suspect]
  4. ATORVASTATIN [Concomitant]
  5. CANDESARTAN CILEXETIL [Concomitant]
  6. CLOPIDOGREL [Concomitant]
  7. DIGOXIN [Concomitant]
  8. NITROGLYCERIN [Concomitant]
  9. HUMALOG [Concomitant]
  10. IPRATROPIUM BROMIDE [Concomitant]
  11. ISOSORBIDE MONONITRATE [Concomitant]
  12. METOCLOPRAMIDE [Concomitant]
  13. OXYCODONE HYDROCHLORIDE [Concomitant]
  14. PREDNISOLONE [Concomitant]
  15. FLUTICASONE PROPIONATE W/SALMETEROL XINAFOATE [Suspect]

REACTIONS (6)
  - ACUTE MYOCARDIAL INFARCTION [None]
  - CHEST PAIN [None]
  - CHRONIC OBSTRUCTIVE PULMONARY DISEASE [None]
  - CONDITION AGGRAVATED [None]
  - DYSPNOEA [None]
  - TACHYCARDIA [None]
